FAERS Safety Report 13072450 (Version 1)
Quarter: 2016Q4

REPORT INFORMATION
  Report Type: Spontaneous
  Country: US (occurrence: US)
  Receive Date: 20161229
  Receipt Date: 20161229
  Transmission Date: 20170207
  Serious: No
  Sender: FDA-Public Use
  Company Number: US-LUNDBECK-DKLU2019986

PATIENT
  Age: 21 Year
  Sex: Female

DRUGS (1)
  1. NORTHERA [Suspect]
     Active Substance: DROXIDOPA
     Indication: PRODUCT USED FOR UNKNOWN INDICATION
     Route: 065
     Dates: start: 20160818, end: 20160828

REACTIONS (4)
  - Palpitations [Unknown]
  - Fatigue [Unknown]
  - Presyncope [Unknown]
  - Sluggishness [Unknown]

NARRATIVE: CASE EVENT DATE: 201608
